FAERS Safety Report 7534113-2 (Version None)
Quarter: 2011Q2

REPORT INFORMATION
  Report Type: 
  Country: None (occurrence: None)
  Receive Date: 20110608
  Receipt Date: 20061013
  Transmission Date: 20111010
  Serious: Yes (Hospitalization)
  Sender: FDA-Public Use
  Company Number: PHMT2006CA01962

PATIENT
  Sex: Female

DRUGS (3)
  1. DIOVAN [Suspect]
     Dosage: 80MG
     Route: 048
     Dates: start: 20020101, end: 20050501
  2. APO-ATENOL [Concomitant]
  3. DIOVAN [Suspect]
     Dosage: 160 MG
     Route: 048
     Dates: start: 20050501

REACTIONS (1)
  - CEREBROVASCULAR ACCIDENT [None]
